FAERS Safety Report 7548845-3 (Version None)
Quarter: 2011Q2

REPORT INFORMATION
  Report Type: 
  Country: None (occurrence: None)
  Receive Date: 20110615
  Receipt Date: 20110609
  Transmission Date: 20111010
  Serious: Yes (Other)
  Sender: FDA-Public Use
  Company Number: US-PFIZER INC-2011127391

PATIENT
  Sex: Male
  Weight: 74 kg

DRUGS (2)
  1. LEVOXYL [Concomitant]
     Indication: HYPOTHYROIDISM
     Dosage: UNK
     Dates: start: 20100101
  2. XALATAN [Suspect]
     Indication: GLAUCOMA
     Dosage: ONE DROP ONCE A DAY
     Route: 047
     Dates: start: 20110423

REACTIONS (1)
  - NEPHROPATHY [None]
